FAERS Safety Report 24308036 (Version 2)
Quarter: 2024Q4

REPORT INFORMATION
  Report Type: Report from Study
  Country: US (occurrence: US)
  Receive Date: 20240911
  Receipt Date: 20241126
  Transmission Date: 20250115
  Serious: No
  Sender: SUNOVION
  Company Number: US-SUMITOMO PHARMA SWITZERLAND GMBH-2024SPA001331

PATIENT

DRUGS (2)
  1. ORGOVYX [Suspect]
     Active Substance: RELUGOLIX
     Indication: Prostate cancer
     Dosage: UNK
     Route: 048
  2. ORGOVYX [Suspect]
     Active Substance: RELUGOLIX
     Dosage: 120 MG, QD
     Route: 048
     Dates: start: 20210911

REACTIONS (8)
  - Osteoarthritis [Not Recovered/Not Resolved]
  - Discomfort [Unknown]
  - Bone deformity [Unknown]
  - Muscular weakness [Unknown]
  - Feeling cold [Unknown]
  - Hot flush [Unknown]
  - Haemoglobin decreased [Unknown]
  - Asthenia [Unknown]
